FAERS Safety Report 5206527-7 (Version None)
Quarter: 2006Q4

REPORT INFORMATION
  Report Type: 
  Country: None (occurrence: None)
  Receive Date: 20061026
  Receipt Date: 20060828
  Transmission Date: 20070319
  Serious: No
  Sender: FDA-Public Use
  Company Number: 2006105394

PATIENT
  Age: 58 Year
  Sex: Male
  Weight: 75.2971 kg

DRUGS (5)
  1. LYRICA [Suspect]
     Indication: SPINAL DISORDER
     Dosage: (1 IN 1 D), ORAL
     Route: 048
     Dates: start: 20060824
  2. LIPITOR [Concomitant]
  3. AVAPRO [Concomitant]
  4. VALTREX [Concomitant]
  5. HYDROCODONE BITARTRATE [Concomitant]

REACTIONS (1)
  - BLOOD GLUCOSE INCREASED [None]
